FAERS Safety Report 7451964-3 (Version None)
Quarter: 2011Q2

REPORT INFORMATION
  Report Type: 
  Country: None (occurrence: None)
  Receive Date: 20110502
  Receipt Date: 20110426
  Transmission Date: 20111010
  Serious: Yes (Hospitalization)
  Sender: FDA-Public Use
  Company Number: PHHY2011US34811

PATIENT
  Age: 22 Year
  Sex: Male

DRUGS (3)
  1. FLUOCINOLONE ACETONIDE [Suspect]
     Dosage: UNK UKN, UNK
     Dates: start: 20080701
  2. CORTICOSTEROIDS FOR SYSTEMIC USE [Concomitant]
     Dosage: UNK UKN, UNK
  3. PREDNISONE [Suspect]
     Dosage: 60 MG, UNK
     Route: 048

REACTIONS (10)
  - VITRITIS [None]
  - VISION BLURRED [None]
  - EYE PAIN [None]
  - PAPILLITIS [None]
  - RETINITIS [None]
  - SIMPLEX VIRUS TEST POSITIVE [None]
  - RETINAL VASCULITIS [None]
  - VISUAL ACUITY REDUCED [None]
  - NECROTISING RETINITIS [None]
  - SCLERITIS [None]
